FAERS Safety Report 17297614 (Version 1)
Quarter: 2020Q1

REPORT INFORMATION
  Report Type: Report from Study
  Country: US (occurrence: US)
  Receive Date: 20200121
  Receipt Date: 20200121
  Transmission Date: 20200409
  Serious: Yes (Hospitalization, Other)
  Sender: FDA-Public Use
  Company Number: US-GILEAD-2020-0447260

PATIENT
  Age: 52 Year
  Sex: Male

DRUGS (11)
  1. PROGRAF [Concomitant]
     Active Substance: TACROLIMUS
  2. WARFARIN [Concomitant]
     Active Substance: WARFARIN
  3. AZTREONAM LYSINE [Suspect]
     Active Substance: AZTREONAM LYSINE
     Indication: CYSTIC FIBROSIS
     Dosage: 75 MG, TID, 1 MONTH ON AND 1 MONTH OFF
     Route: 055
     Dates: start: 20170303
  4. MAGNESIUM [Concomitant]
     Active Substance: MAGNESIUM
  5. MEPRON [METHYLPREDNISOLONE] [Concomitant]
     Active Substance: METHYLPREDNISOLONE
  6. AMLODIPINE [Concomitant]
     Active Substance: AMLODIPINE BESYLATE
  7. NOXAFIL [Concomitant]
     Active Substance: POSACONAZOLE
  8. ACYCLOVIR [ACICLOVIR] [Concomitant]
     Active Substance: ACYCLOVIR
  9. FOLIC ACID. [Concomitant]
     Active Substance: FOLIC ACID
  10. OMEPRAZOLE. [Concomitant]
     Active Substance: OMEPRAZOLE
  11. PREDNISONE. [Concomitant]
     Active Substance: PREDNISONE

REACTIONS (1)
  - Transplantation complication [Unknown]

NARRATIVE: CASE EVENT DATE: 20200112
